FAERS Safety Report 6571783-X (Version None)
Quarter: 2010Q1

REPORT INFORMATION
  Report Type: 
  Country: None (occurrence: None)
  Receive Date: 20100205
  Receipt Date: 20100202
  Transmission Date: 20100710
  Serious: Yes (Life-Threatening, Hospitalization)
  Sender: FDA-Public Use
  Company Number: JP-ASTRAZENECA-2010SE04524

PATIENT
  Age: 42 Year
  Sex: Male

DRUGS (2)
  1. DIPRIVAN [Suspect]
     Indication: INDUCTION OF ANAESTHESIA
     Route: 042
     Dates: start: 20100125, end: 20100125
  2. MUSCULAX [Concomitant]
     Route: 042
     Dates: start: 20100125, end: 20100125

REACTIONS (2)
  - PHARYNGEAL OEDEMA [None]
  - TRACHEAL OEDEMA [None]
